FAERS Safety Report 25474096 (Version 1)
Quarter: 2025Q2

REPORT INFORMATION
  Report Type: Spontaneous
  Country: US (occurrence: US)
  Receive Date: 20250624
  Receipt Date: 20250624
  Transmission Date: 20250716
  Serious: No
  Sender: KRAMER LABORATORIES
  Company Number: US-KRAMERLABS-2025-US-013538

PATIENT
  Age: 68 Year
  Sex: Female
  Weight: 77.11 kg

DRUGS (6)
  1. NIZORAL A-D [Suspect]
     Active Substance: KETOCONAZOLE
     Indication: Product used for unknown indication
     Route: 048
     Dates: start: 20250318
  2. Beet root [Concomitant]
  3. VITAMIN C [Concomitant]
     Active Substance: ASCORBIC ACID
  4. CRANBERRY [Concomitant]
     Active Substance: CRANBERRY
  5. Apple cider [Concomitant]
  6. Unspecified hair gummies [Concomitant]

REACTIONS (2)
  - Accidental exposure to product [Recovered/Resolved]
  - Dysgeusia [Unknown]

NARRATIVE: CASE EVENT DATE: 20250318
